FAERS Safety Report 5065907-3 (Version None)
Quarter: 2006Q3

REPORT INFORMATION
  Report Type: 
  Country: None (occurrence: None)
  Receive Date: 20060728
  Receipt Date: 20060728
  Transmission Date: 20061208
  Serious: Yes (Hospitalization, Disabling)
  Sender: FDA-Public Use
  Company Number: None

PATIENT
  Age: 28 Year
  Sex: Male

DRUGS (19)
  1. DOXYCYCLINE [Suspect]
     Indication: CELLULITIS
     Dosage: 100 MG  Q12 HOURS  IV
     Route: 042
     Dates: start: 20060515, end: 20060516
  2. TIMENTIN [Concomitant]
  3. DOXYCYCLINE HCL [Concomitant]
  4. OXYCODONE HCL [Concomitant]
  5. OXYCONTIN [Concomitant]
  6. SILVER SULFADIAZINE OINTMENT [Concomitant]
  7. HALDOL [Concomitant]
  8. SEROQUEL [Concomitant]
  9. NIFEDIPINE [Concomitant]
  10. ATIVAN [Concomitant]
  11. BENADRYL [Concomitant]
  12. REMERON [Concomitant]
  13. PHENERGAN HCL [Concomitant]
  14. MAGNESIUM OXIDE [Concomitant]
  15. IRON SULFATETHIAMIN COMPOUND TAB [Concomitant]
  16. NEURONTIN [Concomitant]
  17. SENNA [Concomitant]
  18. COLACE [Concomitant]
  19. NEXIUM [Concomitant]

REACTIONS (4)
  - INFUSION SITE ERYTHEMA [None]
  - INFUSION SITE NECROSIS [None]
  - INFUSION SITE REACTION [None]
  - INFUSION SITE ULCER [None]
